FAERS Safety Report 4445804-4 (Version None)
Quarter: 2004Q3

REPORT INFORMATION
  Report Type: 
  Country: None (occurrence: None)
  Receive Date: 20040903
  Receipt Date: 20040824
  Transmission Date: 20050211
  Serious: Yes (Other)
  Sender: FDA-Public Use
  Company Number: 2004-BP-07357AU

PATIENT
  Sex: Male

DRUGS (1)
  1. SPIRIVA [Suspect]
     Dosage: 18 MCG (18 MCG, 18 MCG DAILY) IH
     Route: 055

REACTIONS (1)
  - PROSTATE CANCER [None]
